FAERS Safety Report 17593463 (Version 1)
Quarter: 2020Q1

REPORT INFORMATION
  Report Type: Report from Study
  Country: None (occurrence: NL)
  Receive Date: 20200328
  Receipt Date: 20200328
  Transmission Date: 20200409
  Serious: Yes (Other)
  Sender: FDA-Public Use
  Company Number: NL-ABBVIE-20K-114-3340124-00

PATIENT
  Sex: Male
  Weight: 73 kg

DRUGS (3)
  1. FILGRASTIM [Concomitant]
     Active Substance: FILGRASTIM
     Indication: NEUTROPENIA
     Dosage: INJECTIEVLOEISTOF, 30.000.000 EENHEDEN/ML (EENHEDEN PER MILLILITER)
  2. VENETOCLAX. [Suspect]
     Active Substance: VENETOCLAX
     Dosage: 1 DD 2 STUKS
     Route: 048
     Dates: start: 20180412, end: 20190717
  3. VENETOCLAX. [Suspect]
     Active Substance: VENETOCLAX
     Indication: CHRONIC LYMPHOCYTIC LEUKAEMIA
     Dosage: EERST 400 MG GEHAD
     Route: 048

REACTIONS (2)
  - Aphonia [Recovering/Resolving]
  - Laryngitis [Recovering/Resolving]
